FAERS Safety Report 6937665-6 (Version None)
Quarter: 2010Q3

REPORT INFORMATION
  Report Type: 
  Country: None (occurrence: None)
  Receive Date: 20100820
  Receipt Date: 20100820
  Transmission Date: 20110219
  Serious: Yes (Hospitalization)
  Sender: FDA-Public Use
  Company Number: None

PATIENT
  Sex: Female
  Weight: 81.6475 kg

DRUGS (1)
  1. OMNIPAQUE 350 [Suspect]
     Indication: SCAN WITH CONTRAST

REACTIONS (2)
  - COUGH [None]
  - DYSPNOEA [None]
